FAERS Safety Report 10697507 (Version 1)
Quarter: 2015Q1

REPORT INFORMATION
  Report Type: Spontaneous
  Country: US (occurrence: US)
  Receive Date: 20150108
  Receipt Date: 20150108
  Transmission Date: 20150721
  Serious: No
  Sender: FDA-Public Use
  Company Number: US-TEVA-533004USA

PATIENT
  Age: 23 Year
  Sex: Female
  Weight: 61.29 kg

DRUGS (2)
  1. ARMOUR THYROID [Concomitant]
     Active Substance: THYROID, PORCINE\THYROID, UNSPECIFIED
     Indication: AUTOIMMUNE THYROIDITIS
  2. PARAGARD T 380A [Suspect]
     Active Substance: COPPER
     Indication: CONTRACEPTION
     Route: 015
     Dates: start: 20131030, end: 20150101

REACTIONS (6)
  - Asthenia [Recovered/Resolved]
  - Abdominal pain lower [Recovered/Resolved]
  - Fatigue [Recovered/Resolved]
  - Device expulsion [Recovered/Resolved]
  - Abdominal pain [Recovered/Resolved]
  - Menorrhagia [Recovered/Resolved]

NARRATIVE: CASE EVENT DATE: 20131030
